FAERS Safety Report 8884523 (Version 1)
Quarter: 2012Q4

REPORT INFORMATION
  Report Type: 
  Country: US (occurrence: US)
  Receive Date: 20121102
  Receipt Date: 20121102
  Transmission Date: 20130627
  Serious: No
  Sender: FDA-Public Use
  Company Number: US-ASTRAZENECA-2012SE17588

PATIENT
  Age: 77 Year
  Sex: Female
  Weight: 63 kg

DRUGS (11)
  1. CRESTOR [Suspect]
     Indication: BLOOD CHOLESTEROL ABNORMAL
     Route: 048
     Dates: start: 20120229
  2. COUMADIN [Concomitant]
     Indication: ANTICOAGULANT THERAPY
  3. VITAMINS [Concomitant]
  4. CELEXA [Concomitant]
     Indication: DEPRESSION
  5. FUROSEMIDE [Concomitant]
     Indication: DIURETIC THERAPY
  6. CALCIUM [Concomitant]
  7. MAGNESIUM [Concomitant]
  8. DIGOXIN [Concomitant]
  9. TEKTURNA [Concomitant]
  10. DIOVAN [Concomitant]
  11. DILTIAZEM [Concomitant]

REACTIONS (6)
  - Myalgia [Unknown]
  - Asthenia [Unknown]
  - Asthenia [Unknown]
  - Somnolence [Unknown]
  - Neck pain [Unknown]
  - Fatigue [Unknown]
